FAERS Safety Report 8958806 (Version 1)
Quarter: 2012Q4

REPORT INFORMATION
  Report Type: 
  Country: US (occurrence: US)
  Receive Date: 20121212
  Receipt Date: 20121212
  Transmission Date: 20130627
  Serious: Yes (Death, Hospitalization)
  Sender: FDA-Public Use
  Company Number: PHHY2012US114110

PATIENT
  Age: 64 Year
  Sex: Female

DRUGS (2)
  1. HYDROXYCHLOROQUINE [Suspect]
     Indication: RHEUMATOID ARTHRITIS
     Dosage: 400 mg, QD
     Route: 048
  2. HYDROXYCHLOROQUINE [Suspect]
     Dosage: 200 mg, QD
     Route: 048

REACTIONS (8)
  - Cardiomyopathy [Fatal]
  - Cardiomegaly [Fatal]
  - Respiratory failure [Fatal]
  - General physical health deterioration [Fatal]
  - Sick sinus syndrome [Unknown]
  - Atrial fibrillation [Unknown]
  - Renal failure chronic [Unknown]
  - Myopathy [Unknown]
